FAERS Safety Report 4468420-7 (Version None)
Quarter: 2004Q4

REPORT INFORMATION
  Report Type: 
  Country: None (occurrence: None)
  Receive Date: 20041007
  Receipt Date: 20040119
  Transmission Date: 20050328
  Serious: Yes (Death, Other)
  Sender: FDA-Public Use
  Company Number: PHNU2004DE00620

PATIENT
  Age: 1 Week
  Sex: Male
  Weight: 5 kg

DRUGS (12)
  1. SYNTOCINON [Suspect]
     Route: 064
  2. INTUBATION [Concomitant]
     Dates: start: 20010107, end: 20010109
  3. INTUBATION [Concomitant]
     Dates: start: 20010112
  4. SODIUM CHLORIDE INJ [Concomitant]
     Dates: start: 20010101
  5. RED BLOOD CELLS [Concomitant]
     Dosage: 25ML, UNK
     Dates: start: 20010101
  6. BINOTAL [Concomitant]
     Dates: start: 20010101
  7. STAPENOR [Concomitant]
     Dates: start: 20010101
  8. REFOBACIN [Concomitant]
     Dates: start: 20010101
  9. PHENOBARBITAL TAB [Concomitant]
     Dates: start: 20010101
  10. PIPERACILLIN [Concomitant]
     Dates: start: 20010112, end: 20010115
  11. CEFOTAXIME SODIUM [Concomitant]
     Dates: start: 20010112, end: 20010115
  12. VANCOMYCIN [Concomitant]
     Dates: start: 20010112, end: 20010115

REACTIONS (10)
  - ADRENAL HAEMORRHAGE [None]
  - APGAR SCORE LOW [None]
  - BLOOD CULTURE POSITIVE [None]
  - CEREBRAL HAEMORRHAGE [None]
  - CONVULSION [None]
  - HYPOXIC ENCEPHALOPATHY [None]
  - NEONATAL ASPHYXIA [None]
  - PNEUMONIA [None]
  - POLYCYTHAEMIA [None]
  - RESUSCITATION [None]
